FAERS Safety Report 20399438 (Version 1)
Quarter: 2022Q1

REPORT INFORMATION
  Report Type: Spontaneous
  Country: US (occurrence: US)
  Receive Date: 20220131
  Receipt Date: 20220131
  Transmission Date: 20220423
  Serious: No
  Sender: FDA-Public Use
  Company Number: US-BIOVITRUM-2022US01026

PATIENT
  Sex: Female
  Weight: 8 kg

DRUGS (11)
  1. SYNAGIS [Suspect]
     Active Substance: PALIVIZUMAB
     Indication: Bronchopulmonary dysplasia
     Route: 030
     Dates: start: 20201113
  2. PEDIASURE 0.03G-1/ML LIQUID [Concomitant]
  3. POLY-VI-SOL 250-50/ML DROPS [Concomitant]
  4. SYNAGIS [Suspect]
     Active Substance: PALIVIZUMAB
     Indication: Respiratory disorder
  5. EPINEPHRINE [Concomitant]
     Active Substance: EPINEPHRINE
  6. CHILDRENS FLONASE ALLERGY RLF [Concomitant]
  7. FLOVENT DISKUS [Concomitant]
     Active Substance: FLUTICASONE PROPIONATE
  8. CHILDRENS MOTRIN [Concomitant]
     Active Substance: IBUPROFEN
  9. SYNAGIS [Suspect]
     Active Substance: PALIVIZUMAB
     Indication: Premature baby
  10. CHILDRENS ACETAMINOPHEN [Concomitant]
     Active Substance: ACETAMINOPHEN
  11. ALBUTEROL SULFATE [Concomitant]
     Active Substance: ALBUTEROL SULFATE

REACTIONS (2)
  - Illness [Unknown]
  - Weight decreased [Unknown]
